FAERS Safety Report 12074393 (Version 2)
Quarter: 2016Q1

REPORT INFORMATION
  Report Type: Report from Study
  Country: US (occurrence: US)
  Receive Date: 20160212
  Receipt Date: 20160307
  Transmission Date: 20160526
  Serious: Yes (Hospitalization, Other)
  Sender: FDA-Public Use
  Company Number: US-BRISTOL-MYERS SQUIBB COMPANY-BMS-2016-008099

PATIENT
  Age: 66 Year
  Sex: Female
  Weight: 96 kg

DRUGS (1)
  1. APIXABAN [Suspect]
     Active Substance: APIXABAN
     Indication: CEREBROVASCULAR ACCIDENT PROPHYLAXIS
     Dosage: 10 MG, QD
     Route: 048
     Dates: start: 20151209

REACTIONS (3)
  - Atrial fibrillation [Recovered/Resolved]
  - Cardiac failure congestive [Recovered/Resolved]
  - Cardioversion [Unknown]

NARRATIVE: CASE EVENT DATE: 20160128
